FAERS Safety Report 11692648 (Version 3)
Quarter: 2016Q3

REPORT INFORMATION
  Report Type: Spontaneous
  Country: US (occurrence: US)
  Receive Date: 20151103
  Receipt Date: 20160906
  Transmission Date: 20161109
  Serious: Yes (Congenital Anomaly, Other)
  Sender: FDA-Public Use
  Company Number: PHEH2015US022188

PATIENT
  Sex: Female

DRUGS (1)
  1. ZOFRAN ODT [Suspect]
     Active Substance: ONDANSETRON HYDROCHLORIDE
     Indication: FOETAL EXPOSURE DURING PREGNANCY
     Dosage: MOTHER^S DOSE: 4 MG, QD
     Route: 064

REACTIONS (22)
  - Congenital anomaly [Unknown]
  - Patent ductus arteriosus [Unknown]
  - Foetal exposure during pregnancy [Unknown]
  - Anhedonia [Unknown]
  - Decreased appetite [Unknown]
  - Eustachian tube dysfunction [Unknown]
  - Cardiac murmur [Unknown]
  - Heart disease congenital [Unknown]
  - Cleft palate [Unknown]
  - Emotional distress [Unknown]
  - Diarrhoea [Unknown]
  - Dysmorphism [Unknown]
  - Failure to thrive [Unknown]
  - Asthma [Unknown]
  - Cystic fibrosis [Unknown]
  - Injury [Unknown]
  - Urinary tract infection [Unknown]
  - Anxiety [Unknown]
  - Dyspnoea [Unknown]
  - Multiple congenital abnormalities [Unknown]
  - Pain [Unknown]
  - Gastroenteritis [Unknown]
